FAERS Safety Report 5674775-8 (Version None)
Quarter: 2008Q1

REPORT INFORMATION
  Report Type: 
  Country: None (occurrence: None)
  Receive Date: 20080319
  Receipt Date: 20080319
  Transmission Date: 20080703
  Serious: Yes (Hospitalization)
  Sender: FDA-Public Use
  Company Number: None

PATIENT
  Sex: Male
  Weight: 120 kg

DRUGS (2)
  1. TEMOZOLOMIDE [Suspect]
     Indication: GLIOBLASTOMA MULTIFORME
     Dosage: 300MG -3 CAPSULES QHS ON DAYS 1 + 2 PO
     Route: 048
  2. TEMOZOLOMIDE [Suspect]
     Dosage: 400MG -4 CAPSULES- QHS ON DAYS 3,4,5 PO
     Route: 048

REACTIONS (4)
  - ACCIDENT [None]
  - CONTUSION [None]
  - EPISTAXIS [None]
  - PLATELET COUNT DECREASED [None]
